FAERS Safety Report 8132495-4 (Version None)
Quarter: 2012Q1

REPORT INFORMATION
  Report Type: 
  Country: None (occurrence: None)
  Receive Date: 20120213
  Receipt Date: 20120202
  Transmission Date: 20120608
  Serious: Yes (Hospitalization, Other)
  Sender: FDA-Public Use
  Company Number: MX-BRISTOL-MYERS SQUIBB COMPANY-16385007

PATIENT
  Age: 59 Year
  Sex: Female
  Weight: 80 kg

DRUGS (3)
  1. METFORMIN HCL [Suspect]
     Indication: TYPE 2 DIABETES MELLITUS
     Route: 048
     Dates: start: 19930101
  2. RAMIPRIL + FELODIPINE [Suspect]
     Indication: HYPERTENSION
     Dosage: TABS
     Route: 048
  3. IRBESARTAN [Suspect]
     Indication: HYPERTENSION
     Route: 048

REACTIONS (3)
  - DEHYDRATION [None]
  - HYPERTENSION [None]
  - DIARRHOEA [None]
